FAERS Safety Report 9187835 (Version 1)
Quarter: 2013Q1

REPORT INFORMATION
  Report Type: Spontaneous
  Country: US (occurrence: US)
  Receive Date: 20130325
  Receipt Date: 20130325
  Transmission Date: 20140127
  Serious: No
  Sender: FDA-Public Use
  Company Number: US-MYLANLABS-2012S1011370

PATIENT
  Age: 65 Year
  Sex: Male

DRUGS (1)
  1. FENTANYL TRANSDERMAL SYSTEM [Suspect]
     Indication: COUGH
     Dosage: QOD
     Route: 062
     Dates: start: 2010

REACTIONS (3)
  - Drug ineffective for unapproved indication [Recovered/Resolved]
  - Drug withdrawal syndrome [Recovered/Resolved]
  - Cough [Recovered/Resolved]
